FAERS Safety Report 4446427-3 (Version None)
Quarter: 2004Q3

REPORT INFORMATION
  Report Type: 
  Country: None (occurrence: None)
  Receive Date: 20040907
  Receipt Date: 20040820
  Transmission Date: 20050211
  Serious: Yes (Death)
  Sender: FDA-Public Use
  Company Number: 2004231218US

PATIENT
  Age: 77 Year
  Sex: Female

DRUGS (1)
  1. CELEBREX [Suspect]
     Dosage: 100 MG, BID, ORAL
     Route: 048
     Dates: start: 19990809, end: 20001215

REACTIONS (1)
  - ACUTE MYOCARDIAL INFARCTION [None]
